FAERS Safety Report 8906279 (Version 1)
Quarter: 2012Q4

REPORT INFORMATION
  Report Type: Spontaneous
  Country: US (occurrence: None)
  Receive Date: 20121107
  Receipt Date: 20121107
  Transmission Date: 20130627
  Serious: Yes (Death, Hospitalization)
  Sender: FDA-Public Use
  Company Number: UTC-024577

PATIENT
  Age: 70 Year
  Sex: Male
  Weight: 67.27 kg

DRUGS (5)
  1. REMODULIN (10 MILLIGRAM/MILLILITERS, INJECTION FOR INFUSION) (TREPROSTINIL SODIUM) [Suspect]
     Indication: PRIMARY PULMONARY HYPERTENSION
     Dosage: 149.76 ug/kg (0.104 ug/kg, 1 in 1 min), subcutaneous
     Dates: start: 20090225
  2. REMODULIN (10 MILLIGRAM/MILLILITERS, INJECTION FOR INFUSION) (TREPROSTINIL SODIUM) [Suspect]
     Indication: PULMONARY HYPERTENSION
     Dosage: 149.76 ug/kg (0.104 ug/kg, 1 in 1 min), subcutaneous
     Dates: start: 20090225
  3. ADCIRCA (TADALAFIL) [Concomitant]
  4. COUMADIN (WARFARIN SODIUM) [Concomitant]
  5. PROCARDIA (NIFEDIPINE) [Concomitant]

REACTIONS (1)
  - Pulmonary hypertension [None]
